FAERS Safety Report 8465795 (Version 2)
Quarter: 2013Q4

REPORT INFORMATION
  Report Type: Spontaneous
  Country: MX (occurrence: MX)
  Receive Date: 20120319
  Receipt Date: 20131010
  Transmission Date: 20140711
  Serious: Yes (Other)
  Sender: FDA-Public Use
  Company Number: PHHY2011MX77077

PATIENT
  Age: 34 Year
  Sex: Female

DRUGS (5)
  1. TRILEPTAL [Suspect]
     Indication: CONVULSION
     Dosage: 200 MG, BID
  2. TEGRETOL [Suspect]
     Indication: CONVULSION
     Dosage: 200 MG, BID
     Route: 048
     Dates: end: 20110823
  3. FOLIC ACID [Concomitant]
     Indication: VITAMIN SUPPLEMENTATION
     Dosage: UNK UKN, UNK
     Dates: start: 201108
  4. ASPIRIN [Concomitant]
     Dosage: 1 DF, DAILY
  5. MULTI-VIT [Concomitant]
     Dosage: 1 DF, DAILY

REACTIONS (5)
  - High risk pregnancy [Unknown]
  - Premature delivery [Recovered/Resolved]
  - Pre-eclampsia [Unknown]
  - Blood pressure increased [Unknown]
  - Exposure during pregnancy [Recovered/Resolved]
